FAERS Safety Report 24832215 (Version 1)
Quarter: 2025Q1

REPORT INFORMATION
  Report Type: Spontaneous
  Country: FR (occurrence: FR)
  Receive Date: 20250110
  Receipt Date: 20250110
  Transmission Date: 20250409
  Serious: Yes (Death)
  Sender: PURDUE
  Company Number: FR-PURDUE-USA-2025-0314548

PATIENT
  Age: 40 Year
  Sex: Male

DRUGS (1)
  1. OXYCODONE HYDROCHLORIDE [Suspect]
     Active Substance: OXYCODONE HYDROCHLORIDE
     Indication: Product used for unknown indication
     Route: 065
     Dates: end: 202305

REACTIONS (3)
  - Drug use disorder [Fatal]
  - Poisoning deliberate [Fatal]
  - Asphyxia [Fatal]
